FAERS Safety Report 7788570-7 (Version None)
Quarter: 2011Q3

REPORT INFORMATION
  Report Type: 
  Country: None (occurrence: None)
  Receive Date: 20110922
  Receipt Date: 20110914
  Transmission Date: 20111222
  Serious: Yes (Life-Threatening, Other)
  Sender: FDA-Public Use
  Company Number: AECAN201000404

PATIENT
  Age: 73 Year
  Sex: Male
  Weight: 86 kg

DRUGS (5)
  1. FRAGMIN [Concomitant]
  2. ASPIRIN [Concomitant]
  3. GAMUNEX [Suspect]
     Indication: MULTIPLE MYELOMA
     Dosage: 30 GM;IV
     Route: 042
     Dates: start: 20090901
  4. GAMUNEX [Suspect]
  5. GAMUNEX [Suspect]

REACTIONS (2)
  - PULMONARY EMBOLISM [None]
  - ANAPHYLACTIC REACTION [None]
